FAERS Safety Report 7271049-9 (Version None)
Quarter: 2011Q1

REPORT INFORMATION
  Report Type: 
  Country: None (occurrence: None)
  Receive Date: 20110202
  Receipt Date: 20110127
  Transmission Date: 20110831
  Serious: Yes (Other)
  Sender: FDA-Public Use
  Company Number: BR-PFIZER INC-2011019711

PATIENT
  Age: 36 Year
  Sex: Female
  Weight: 80 kg

DRUGS (3)
  1. FLUOXETINE [Concomitant]
     Indication: DEPRESSION
     Dosage: UNK
     Dates: start: 19960128
  2. DOSTINEX [Suspect]
     Indication: LACTATION INHIBITION THERAPY
     Dosage: 2 PER DAY (UNSPECIFIED POSOLOGY)
     Route: 048
     Dates: start: 20110120, end: 20110121
  3. ALPRAZOLAM [Concomitant]
     Dosage: UNK
     Dates: start: 19960101

REACTIONS (8)
  - HOT FLUSH [None]
  - ANXIETY [None]
  - CRYING [None]
  - FEELING OF DESPAIR [None]
  - SEDATION [None]
  - BURNING SENSATION [None]
  - DEPRESSION [None]
  - PANIC REACTION [None]
